FAERS Safety Report 4661518-X (Version None)
Quarter: 2005Q2

REPORT INFORMATION
  Report Type: 
  Country: None (occurrence: None)
  Receive Date: 20050512
  Receipt Date: 20050512
  Transmission Date: 20051028
  Serious: Yes (Hospitalization)
  Sender: FDA-Public Use
  Company Number: None

PATIENT
  Age: 59 Year
  Sex: Male

DRUGS (12)
  1. VALPROIC ACID [Suspect]
     Indication: CONVULSION
     Dosage: 500 MG EC PO BID
     Route: 048
     Dates: start: 20030711, end: 20050324
  2. HYDROCHLOROTHIAZIDE [Suspect]
     Indication: HYPERTENSION
     Dosage: 25 MG PO QD
     Route: 048
     Dates: start: 20050126, end: 20050320
  3. PERCOCET [Concomitant]
  4. RISPERIDONE [Concomitant]
  5. METFORMIN [Concomitant]
  6. PAROXETINE [Concomitant]
  7. ENALAPRIL MALEATE [Concomitant]
  8. FUROSEMIDE [Concomitant]
  9. GLYBURIDE [Concomitant]
  10. DIVALPROEX SODIUM [Concomitant]
  11. 70/30 [Concomitant]
  12. NPH INSULIN [Concomitant]

REACTIONS (3)
  - MULTI-ORGAN FAILURE [None]
  - PANCREATITIS [None]
  - SEPSIS [None]
